FAERS Safety Report 5389683-X (Version None)
Quarter: 2007Q3

REPORT INFORMATION
  Report Type: 
  Country: None (occurrence: None)
  Receive Date: 20070717
  Receipt Date: 20070705
  Transmission Date: 20080115
  Serious: Yes (Other)
  Sender: FDA-Public Use
  Company Number: US-PFIZER INC-2007057616

PATIENT

DRUGS (1)
  1. SUTENT [Suspect]

REACTIONS (2)
  - ATRIAL FIBRILLATION [None]
  - PYREXIA [None]
